FAERS Safety Report 5238724-9 (Version None)
Quarter: 2007Q1

REPORT INFORMATION
  Report Type: 
  Country: None (occurrence: None)
  Receive Date: 20070215
  Receipt Date: 20070214
  Transmission Date: 20070707
  Serious: Yes (Life-Threatening)
  Sender: FDA-Public Use
  Company Number: DE-BOEHRINGER INGELHEIM PHARMACEUTICALS, INC.-2007-DE-00939DE

PATIENT
  Sex: Female
  Weight: 72 kg

DRUGS (1)
  1. MOBEC 15 MG/1,5 ML SUSPENSION [Suspect]
     Indication: SPONDYLITIS
     Route: 030
     Dates: start: 20070103, end: 20070103

REACTIONS (4)
  - DIZZINESS [None]
  - DYSPNOEA [None]
  - PRURITUS GENERALISED [None]
  - URTICARIA [None]
